FAERS Safety Report 19592581 (Version 1)
Quarter: 2021Q3

REPORT INFORMATION
  Report Type: Report from Study
  Country: US (occurrence: US)
  Receive Date: 20210722
  Receipt Date: 20210722
  Transmission Date: 20211014
  Serious: Yes (Hospitalization)
  Sender: FDA-Public Use
  Company Number: US-GILEAD-2021-0541103

PATIENT
  Sex: Male

DRUGS (7)
  1. AQUADEKS [Concomitant]
     Active Substance: MINERALS\VITAMINS
  2. CREON [Concomitant]
     Active Substance: PANCRELIPASE AMYLASE\PANCRELIPASE LIPASE\PANCRELIPASE PROTEASE
  3. FEROSUL [Concomitant]
     Active Substance: FERROUS SULFATE
  4. PULMOZYME [Concomitant]
     Active Substance: DORNASE ALFA
  5. ALBUTEROL [SALBUTAMOL] [Concomitant]
     Active Substance: ALBUTEROL
  6. AZTREONAM LYSINE [Suspect]
     Active Substance: AZTREONAM LYSINE
     Indication: CYSTIC FIBROSIS
     Dosage: 75 MG, TID, 28 DAYS ON, THEN 28 DAYS OFF
     Route: 055
     Dates: start: 20190406
  7. TRIKAFTA [Concomitant]
     Active Substance: ELEXACAFTOR\IVACAFTOR\TEZACAFTOR

REACTIONS (2)
  - Cystic fibrosis respiratory infection suppression [Not Recovered/Not Resolved]
  - Intentional dose omission [Unknown]
